FAERS Safety Report 10538841 (Version 6)
Quarter: 2015Q1

REPORT INFORMATION
  Report Type: Report from Study
  Country: US (occurrence: US)
  Receive Date: 20141023
  Receipt Date: 20150223
  Transmission Date: 20150720
  Serious: Yes (Life-Threatening, Hospitalization, Other)
  Sender: FDA-Public Use
  Company Number: US-TAKEDA-2014TUS009261

PATIENT
  Age: 36 Year
  Sex: Female
  Weight: 127.1 kg

DRUGS (14)
  1. SODIUM CHLORIDE. [Concomitant]
     Active Substance: SODIUM CHLORIDE
     Dosage: 10-80 ML, Q8HR
     Route: 042
     Dates: start: 20141017
  2. FENOFIBRATE. [Concomitant]
     Active Substance: FENOFIBRATE
     Dosage: 145 MG, QD
     Route: 048
     Dates: start: 20140620
  3. LANTUS [Concomitant]
     Active Substance: INSULIN GLARGINE
     Dosage: 42 IU, QHS
     Route: 058
     Dates: start: 20140625
  4. VASOLEXIN [Concomitant]
     Indication: WOUND HEALING NORMAL
     Dosage: UNK UNK, BID
     Dates: start: 20141008
  5. RANITIDINE [Concomitant]
     Active Substance: RANITIDINE\RANITIDINE HYDROCHLORIDE
     Dosage: 150 MG, PRN
     Route: 048
     Dates: start: 20120812
  6. ALBUTEROL                          /00139501/ [Concomitant]
     Active Substance: ALBUTEROL
     Indication: BRONCHOSPASM
     Dosage: 2.5 MG, BID
     Route: 050
     Dates: start: 20141011
  7. INSULIN LISPRO [Concomitant]
     Active Substance: INSULIN LISPRO
     Indication: DIABETES MELLITUS
  8. COLESTIPOL [Concomitant]
     Active Substance: COLESTIPOL
     Dosage: 2 G, QD
     Route: 048
     Dates: start: 20140827
  9. SODIUM CHLORIDE. [Concomitant]
     Active Substance: SODIUM CHLORIDE
     Dosage: 10-80 ML, IV PUSH, Q8HR
     Route: 042
     Dates: start: 20141015
  10. ARIPIPRAZOLE. [Concomitant]
     Active Substance: ARIPIPRAZOLE
     Indication: DEPRESSION
     Dosage: 2 MG, QD
     Dates: start: 20141008
  11. BUPROPION [Concomitant]
     Active Substance: BUPROPION
     Indication: DEPRESSION
     Dosage: 100 MG, BID
     Dates: start: 20141008
  12. VEDOLIZUMAB [Suspect]
     Active Substance: VEDOLIZUMAB
     Indication: CROHN^S DISEASE
     Dosage: 300 MG, Q4WEEKS
     Route: 042
     Dates: start: 20110707
  13. HUMALOG [Concomitant]
     Active Substance: INSULIN LISPRO
     Dosage: 6 IU, TID
     Route: 058
     Dates: start: 20140626
  14. WELLBUTRIN [Concomitant]
     Active Substance: BUPROPION HYDROCHLORIDE
     Dosage: 100 MG, BID
     Route: 048
     Dates: start: 20140829

REACTIONS (6)
  - Large intestine perforation [Recovered/Resolved with Sequelae]
  - Intestinal perforation [Recovered/Resolved with Sequelae]
  - Septic shock [Recovered/Resolved with Sequelae]
  - Abdominal hernia [Recovered/Resolved]
  - Intestinal perforation [Recovered/Resolved with Sequelae]
  - Pulmonary embolism [Recovered/Resolved]

NARRATIVE: CASE EVENT DATE: 20140821
